FAERS Safety Report 6807784-3 (Version None)
Quarter: 2010Q2

REPORT INFORMATION
  Report Type: 
  Country: None (occurrence: None)
  Receive Date: 20100629
  Receipt Date: 20081222
  Transmission Date: 20101027
  Serious: No
  Sender: FDA-Public Use
  Company Number: US-PFIZER INC-2008160383

PATIENT
  Sex: Male
  Weight: 98.9 kg

DRUGS (12)
  1. TIKOSYN [Suspect]
     Indication: ATRIAL FIBRILLATION
     Dosage: 500 UG, 2X/DAY
     Dates: start: 20061001
  2. ATIVAN [Concomitant]
  3. AVODART [Concomitant]
  4. ACETYLSALICYLIC ACID [Concomitant]
  5. PLAVIX [Concomitant]
  6. WARFARIN [Concomitant]
  7. TAMSULOSIN HYDROCHLORIDE [Concomitant]
  8. CRESTOR [Concomitant]
  9. MAGNESIUM [Concomitant]
  10. ATENOLOL [Concomitant]
  11. NEXIUM [Concomitant]
  12. ZANTAC [Concomitant]

REACTIONS (2)
  - ABDOMINAL DISCOMFORT [None]
  - NAUSEA [None]
